FAERS Safety Report 16802693 (Version 1)
Quarter: 2019Q3

REPORT INFORMATION
  Report Type: Spontaneous
  Country: DE (occurrence: DE)
  Receive Date: 20190912
  Receipt Date: 20190912
  Transmission Date: 20191005
  Serious: Yes (Hospitalization)
  Sender: FDA-Public Use
  Company Number: DE-ROCHE-2402789

PATIENT
  Age: 79 Year
  Sex: Male

DRUGS (2)
  1. ROACTEMRA [Suspect]
     Active Substance: TOCILIZUMAB
     Indication: RHEUMATOID ARTHRITIS
     Dosage: IN /MAY/2019, LAST DOSE OF TOCILIZUMAB.
     Route: 058
     Dates: start: 2018
  2. PREDNISOLON [PREDNISOLONE] [Concomitant]
     Active Substance: PREDNISOLONE
     Route: 065

REACTIONS (6)
  - Rheumatoid arthritis [Not Recovered/Not Resolved]
  - Diverticular perforation [Recovering/Resolving]
  - Gastrointestinal disorder [Not Recovered/Not Resolved]
  - Peritonitis [Recovering/Resolving]
  - Haematoma infection [Unknown]
  - Purulence [Not Recovered/Not Resolved]

NARRATIVE: CASE EVENT DATE: 201905
